FAERS Safety Report 17562123 (Version 1)
Quarter: 2020Q1

REPORT INFORMATION
  Report Type: Spontaneous
  Country: BR (occurrence: BR)
  Receive Date: 20200319
  Receipt Date: 20200319
  Transmission Date: 20200409
  Serious: Yes (Other)
  Sender: FDA-Public Use
  Company Number: BR-ROCHE-2571265

PATIENT
  Sex: Male

DRUGS (6)
  1. COZAAR [Concomitant]
     Active Substance: LOSARTAN POTASSIUM
     Indication: HYPERTENSION
     Route: 048
  2. EUTHYROX [Concomitant]
     Active Substance: LEVOTHYROXINE SODIUM
     Indication: HYPOTHYROIDISM
     Route: 048
  3. XOLAIR [Suspect]
     Active Substance: OMALIZUMAB
     Indication: CHRONIC SPONTANEOUS URTICARIA
     Dosage: 2 AMPOULES EVERY 4 WEEKS
     Route: 058
     Dates: start: 201909
  4. LORATADIN [Concomitant]
     Active Substance: LORATADINE
  5. HIXIZINE [Concomitant]
     Active Substance: HYDROXYZINE HYDROCHLORIDE
  6. ALEGRA [Concomitant]

REACTIONS (1)
  - Urticaria [Recovering/Resolving]
